FAERS Safety Report 11124800 (Version 1)
Quarter: 2015Q2

REPORT INFORMATION
  Report Type: Spontaneous
  Country: BR (occurrence: BR)
  Receive Date: 20150520
  Receipt Date: 20150520
  Transmission Date: 20150821
  Serious: Yes (Hospitalization, Other)
  Sender: FDA-Public Use
  Company Number: BR-ABBVIE-15P-020-1394565-00

PATIENT
  Age: 45 Year
  Sex: Male
  Weight: 89 kg

DRUGS (6)
  1. DEPAKENE [Suspect]
     Active Substance: VALPROIC ACID
     Indication: EPILEPSY
     Route: 065
  2. GARDENAL [Concomitant]
     Active Substance: PHENOBARBITAL
     Indication: SEIZURE
     Dosage: DAILY DOSE: 400MG (200 MG IN THE MORNING AND 200 MG AT NIGHT)
     Route: 048
     Dates: start: 2006
  3. DEPAKOTE ER [Suspect]
     Active Substance: DIVALPROEX SODIUM
     Indication: EPILEPSY
     Dosage: 2 OR 3 TABLETS DEPENDS OF HOW HE WAS ON THE DAY
     Route: 048
     Dates: start: 2007
  4. RIVOTRIL [Concomitant]
     Active Substance: CLONAZEPAM
     Indication: ANXIOLYTIC THERAPY
     Dosage: DAILY DOSE: 8MG; 4 MG IN THE MORNING AND 4 MG AT NIGHT
     Route: 048
     Dates: start: 2006
  5. GARDENAL [Concomitant]
     Active Substance: PHENOBARBITAL
     Indication: PROPHYLAXIS
  6. CITALOPRAM [Concomitant]
     Active Substance: CITALOPRAM HYDROBROMIDE
     Indication: PRODUCT USED FOR UNKNOWN INDICATION
     Dosage: ONCE, IN THE MORNING
     Dates: start: 2006

REACTIONS (12)
  - Tongue injury [Recovering/Resolving]
  - Negative thoughts [Unknown]
  - Feeling abnormal [Unknown]
  - Seizure [Recovered/Resolved]
  - Suicidal ideation [Unknown]
  - Decreased appetite [Recovered/Resolved]
  - Nausea [Recovering/Resolving]
  - Heart rate increased [Unknown]
  - Speech disorder [Unknown]
  - Syncope [Unknown]
  - Tongue disorder [Recovering/Resolving]
  - Headache [Recovered/Resolved]

NARRATIVE: CASE EVENT DATE: 201504
